FAERS Safety Report 7934253-X (Version None)
Quarter: 2011Q4

REPORT INFORMATION
  Report Type: 
  Country: None (occurrence: None)
  Receive Date: 20111122
  Receipt Date: 20111115
  Transmission Date: 20120403
  Serious: Yes (Hospitalization)
  Sender: FDA-Public Use
  Company Number: GB-JNJFOC-20111107874

PATIENT
  Age: 73 Year
  Sex: Male

DRUGS (2)
  1. LOPERAMIDE HCL [Suspect]
     Indication: PRODUCT USED FOR UNKNOWN INDICATION
     Dosage: 25 MG 4 TIMES A DAY
     Route: 048
  2. LOPERAMIDE HCL [Suspect]
     Route: 048

REACTIONS (2)
  - OVERDOSE [None]
  - TORSADE DE POINTES [None]
